FAERS Safety Report 8680029 (Version 2)
Quarter: 2013Q1

REPORT INFORMATION
  Report Type: Spontaneous
  Country: US (occurrence: None)
  Receive Date: 20120706
  Receipt Date: 20130219
  Transmission Date: 20140127
  Serious: Yes (Other)
  Sender: FDA-Public Use
  Company Number: DSU-2012-05223

PATIENT
  Age: 72 Year
  Sex: Female

DRUGS (3)
  1. OLMESARTAN MEDOXOMIL [Suspect]
     Dosage: 20-40 MG (QD), PER ORAL
     Route: 048
     Dates: start: 2004, end: 20090528
  2. ASPIRIN (ACETYLSALICYLIC ACID) (81 MILLIGRAM) (ACETYLSALICYLIC ACID) [Concomitant]
  3. XANAX (ALPRAZOLAM) (0.25 MILLIGRAM) (ALPRAZOLAM) [Concomitant]

REACTIONS (8)
  - WEIGHT DECREASED [None]
  - Diarrhoea [None]
  - Renal failure acute [None]
  - Osteoporosis [None]
  - Hypokalaemia [None]
  - Metabolic acidosis [None]
  - Intestinal villi atrophy [None]
  - Malabsorption [None]
